FAERS Safety Report 18358436 (Version 2)
Quarter: 2022Q2

REPORT INFORMATION
  Report Type: Spontaneous
  Country: US (occurrence: US)
  Receive Date: 20201008
  Receipt Date: 20220517
  Transmission Date: 20220721
  Serious: Yes (Death, Other)
  Sender: FDA-Public Use
  Company Number: US-SAARTEMIS-SAC202010050335

PATIENT
  Age: 53 Year
  Sex: Male

DRUGS (1)
  1. ZANTAC [Suspect]
     Active Substance: RANITIDINE HYDROCHLORIDE
     Indication: Gastrooesophageal reflux disease
     Dosage: 150 MG, QD
     Dates: start: 201401, end: 201701

REACTIONS (4)
  - Hepatic cancer metastatic [Fatal]
  - Bladder cancer stage IV [Fatal]
  - Renal cancer [Fatal]
  - Liver disorder [Unknown]

NARRATIVE: CASE EVENT DATE: 20190723
